FAERS Safety Report 8961823 (Version 1)
Quarter: 2012Q4

REPORT INFORMATION
  Report Type: 
  Country: US (occurrence: US)
  Receive Date: 20121213
  Receipt Date: 20121213
  Transmission Date: 20130627
  Serious: No
  Sender: FDA-Public Use
  Company Number: US-BIOGENIDEC-2012BI057753

PATIENT
  Age: 46 Year
  Sex: Female

DRUGS (4)
  1. AVONEX [Suspect]
     Indication: MULTIPLE SCLEROSIS
     Route: 030
     Dates: start: 19970101
  2. AVONEX [Suspect]
     Indication: MULTIPLE SCLEROSIS
     Route: 030
  3. TYLENOL [Concomitant]
     Indication: PREMEDICATION
  4. AMBIEN [Concomitant]
     Indication: INSOMNIA

REACTIONS (4)
  - Retching [Recovered/Resolved]
  - Head injury [Recovered/Resolved]
  - Influenza like illness [Recovered/Resolved]
  - Syncope [Recovered/Resolved]
